FAERS Safety Report 9426286 (Version 2)
Quarter: 2013Q3

REPORT INFORMATION
  Report Type: Spontaneous
  Country: CA (occurrence: CA)
  Receive Date: 20130730
  Receipt Date: 20130819
  Transmission Date: 20140515
  Serious: Yes (Hospitalization, Other)
  Sender: FDA-Public Use
  Company Number: CA-AMGEN-CANSP2012081074

PATIENT
  Age: 84 Year
  Sex: Male
  Weight: 65.91 kg

DRUGS (1)
  1. PROLIA [Suspect]
     Indication: OSTEOPOROSIS
     Dosage: UNK
     Route: 065
     Dates: start: 20111205

REACTIONS (4)
  - Coma [Recovering/Resolving]
  - Myocardial infarction [Recovering/Resolving]
  - Urinary tract infection [Not Recovered/Not Resolved]
  - Urosepsis [Unknown]
